FAERS Safety Report 24200992 (Version 1)
Quarter: 2024Q3

REPORT INFORMATION
  Report Type: Spontaneous
  Country: PT (occurrence: PT)
  Receive Date: 20240812
  Receipt Date: 20240812
  Transmission Date: 20241016
  Serious: Yes (Other)
  Sender: MYLAN
  Company Number: PT-AUROBINDO-AUR-APL-2024-037298

PATIENT
  Age: 74 Year
  Sex: Male

DRUGS (2)
  1. LEVETIRACETAM [Suspect]
     Active Substance: LEVETIRACETAM
     Indication: Product used for unknown indication
     Dosage: UNK
     Route: 065
  2. BACLOFEN [Suspect]
     Active Substance: BACLOFEN
     Indication: Cerebrovascular accident
     Dosage: 10 MILLIGRAM, TID (30 MILLIGRAM, QD)
     Route: 065

REACTIONS (2)
  - Neurotoxicity [Recovered/Resolved]
  - Drug ineffective [Unknown]
